FAERS Safety Report 25142276 (Version 1)
Quarter: 2025Q1

REPORT INFORMATION
  Report Type: Spontaneous
  Country: CA (occurrence: CA)
  Receive Date: 20250331
  Receipt Date: 20250331
  Transmission Date: 20250409
  Serious: Yes (Hospitalization, Other)
  Sender: MYLAN
  Company Number: CA-MYLANLABS-2025M1025801

PATIENT
  Sex: Female

DRUGS (68)
  1. EPINEPHRINE [Suspect]
     Active Substance: EPINEPHRINE
     Indication: Product used for unknown indication
  2. EPINEPHRINE [Suspect]
     Active Substance: EPINEPHRINE
     Route: 065
  3. EPINEPHRINE [Suspect]
     Active Substance: EPINEPHRINE
     Route: 065
  4. EPINEPHRINE [Suspect]
     Active Substance: EPINEPHRINE
  5. BUPROPION HYDROCHLORIDE [Suspect]
     Active Substance: BUPROPION HYDROCHLORIDE
     Indication: Product used for unknown indication
  6. BUPROPION HYDROCHLORIDE [Suspect]
     Active Substance: BUPROPION HYDROCHLORIDE
     Route: 065
  7. BUPROPION HYDROCHLORIDE [Suspect]
     Active Substance: BUPROPION HYDROCHLORIDE
     Route: 065
  8. BUPROPION HYDROCHLORIDE [Suspect]
     Active Substance: BUPROPION HYDROCHLORIDE
  9. CLONAZEPAM [Suspect]
     Active Substance: CLONAZEPAM
     Indication: Product used for unknown indication
  10. CLONAZEPAM [Suspect]
     Active Substance: CLONAZEPAM
  11. CLONAZEPAM [Suspect]
     Active Substance: CLONAZEPAM
     Route: 065
  12. CLONAZEPAM [Suspect]
     Active Substance: CLONAZEPAM
     Route: 065
  13. CLONAZEPAM [Suspect]
     Active Substance: CLONAZEPAM
  14. CLONAZEPAM [Suspect]
     Active Substance: CLONAZEPAM
  15. CLONAZEPAM [Suspect]
     Active Substance: CLONAZEPAM
     Route: 065
  16. CLONAZEPAM [Suspect]
     Active Substance: CLONAZEPAM
     Route: 065
  17. MELOXICAM [Suspect]
     Active Substance: MELOXICAM
     Indication: Product used for unknown indication
     Dosage: 15 MILLIGRAM, QD (1 EVERY ONE DAY)
  18. MELOXICAM [Suspect]
     Active Substance: MELOXICAM
     Dosage: 15 MILLIGRAM, QD (1 EVERY ONE DAY)
  19. MELOXICAM [Suspect]
     Active Substance: MELOXICAM
     Dosage: 15 MILLIGRAM, QD (1 EVERY ONE DAY)
     Route: 065
  20. MELOXICAM [Suspect]
     Active Substance: MELOXICAM
     Dosage: 15 MILLIGRAM, QD (1 EVERY ONE DAY)
     Route: 065
  21. MELOXICAM [Suspect]
     Active Substance: MELOXICAM
  22. MELOXICAM [Suspect]
     Active Substance: MELOXICAM
  23. MELOXICAM [Suspect]
     Active Substance: MELOXICAM
     Route: 065
  24. MELOXICAM [Suspect]
     Active Substance: MELOXICAM
     Route: 065
  25. RAMIPRIL [Suspect]
     Active Substance: RAMIPRIL
     Indication: Product used for unknown indication
     Dosage: 2.5 MILLIGRAM, QD
  26. RAMIPRIL [Suspect]
     Active Substance: RAMIPRIL
     Dosage: 2.5 MILLIGRAM, QD
     Route: 065
  27. RAMIPRIL [Suspect]
     Active Substance: RAMIPRIL
     Dosage: 2.5 MILLIGRAM, QD
     Route: 065
  28. RAMIPRIL [Suspect]
     Active Substance: RAMIPRIL
     Dosage: 2.5 MILLIGRAM, QD
  29. RUPATADINE [Suspect]
     Active Substance: RUPATADINE
     Indication: Product used for unknown indication
     Dosage: 10 MILLIGRAM, QD (1 EVERY 1 DAY)
  30. RUPATADINE [Suspect]
     Active Substance: RUPATADINE
     Dosage: 10 MILLIGRAM, QD (1 EVERY 1 DAY)
     Route: 065
  31. RUPATADINE [Suspect]
     Active Substance: RUPATADINE
     Dosage: 10 MILLIGRAM, QD (1 EVERY 1 DAY)
     Route: 065
  32. RUPATADINE [Suspect]
     Active Substance: RUPATADINE
     Dosage: 10 MILLIGRAM, QD (1 EVERY 1 DAY)
  33. EZETIMIBE [Suspect]
     Active Substance: EZETIMIBE
     Indication: Type IIa hyperlipidaemia
  34. EZETIMIBE [Suspect]
     Active Substance: EZETIMIBE
  35. EZETIMIBE [Suspect]
     Active Substance: EZETIMIBE
     Route: 058
  36. EZETIMIBE [Suspect]
     Active Substance: EZETIMIBE
     Route: 058
  37. EZETIMIBE [Suspect]
     Active Substance: EZETIMIBE
     Dosage: 10 MILLIGRAM, QD (1 EVERY 1 DAY)
  38. EZETIMIBE [Suspect]
     Active Substance: EZETIMIBE
     Dosage: 10 MILLIGRAM, QD (1 EVERY 1 DAY)
  39. EZETIMIBE [Suspect]
     Active Substance: EZETIMIBE
     Dosage: 10 MILLIGRAM, QD (1 EVERY 1 DAY)
     Route: 065
  40. EZETIMIBE [Suspect]
     Active Substance: EZETIMIBE
     Dosage: 10 MILLIGRAM, QD (1 EVERY 1 DAY)
     Route: 065
  41. ROSUVASTATIN CALCIUM [Suspect]
     Active Substance: ROSUVASTATIN CALCIUM
     Indication: Type IIa hyperlipidaemia
  42. ROSUVASTATIN CALCIUM [Suspect]
     Active Substance: ROSUVASTATIN CALCIUM
  43. ROSUVASTATIN CALCIUM [Suspect]
     Active Substance: ROSUVASTATIN CALCIUM
     Route: 058
  44. ROSUVASTATIN CALCIUM [Suspect]
     Active Substance: ROSUVASTATIN CALCIUM
     Route: 058
  45. ROSUVASTATIN CALCIUM [Suspect]
     Active Substance: ROSUVASTATIN CALCIUM
     Dosage: 5 MILLIGRAM, QD ( 1 EVERY 1 DAYS)
  46. ROSUVASTATIN CALCIUM [Suspect]
     Active Substance: ROSUVASTATIN CALCIUM
     Dosage: 5 MILLIGRAM, QD ( 1 EVERY 1 DAYS)
  47. ROSUVASTATIN CALCIUM [Suspect]
     Active Substance: ROSUVASTATIN CALCIUM
     Dosage: 5 MILLIGRAM, QD ( 1 EVERY 1 DAYS)
     Route: 065
  48. ROSUVASTATIN CALCIUM [Suspect]
     Active Substance: ROSUVASTATIN CALCIUM
     Dosage: 5 MILLIGRAM, QD ( 1 EVERY 1 DAYS)
     Route: 065
  49. SEMAGLUTIDE [Suspect]
     Active Substance: SEMAGLUTIDE
     Indication: Product used for unknown indication
     Dosage: 1 MILLIGRAM, QW (1 EVERY 1 WEEK)
  50. SEMAGLUTIDE [Suspect]
     Active Substance: SEMAGLUTIDE
     Dosage: 1 MILLIGRAM, QW (1 EVERY 1 WEEK)
  51. SEMAGLUTIDE [Suspect]
     Active Substance: SEMAGLUTIDE
     Dosage: 1 MILLIGRAM, QW (1 EVERY 1 WEEK)
     Route: 065
  52. SEMAGLUTIDE [Suspect]
     Active Substance: SEMAGLUTIDE
     Dosage: 1 MILLIGRAM, QW (1 EVERY 1 WEEK)
     Route: 065
  53. SEMAGLUTIDE [Suspect]
     Active Substance: SEMAGLUTIDE
  54. SEMAGLUTIDE [Suspect]
     Active Substance: SEMAGLUTIDE
  55. SEMAGLUTIDE [Suspect]
     Active Substance: SEMAGLUTIDE
     Route: 065
  56. SEMAGLUTIDE [Suspect]
     Active Substance: SEMAGLUTIDE
     Route: 065
  57. ROSUVASTATIN CALCIUM [Suspect]
     Active Substance: ROSUVASTATIN CALCIUM
     Indication: Product used for unknown indication
  58. ROSUVASTATIN CALCIUM [Suspect]
     Active Substance: ROSUVASTATIN CALCIUM
     Route: 065
  59. ROSUVASTATIN CALCIUM [Suspect]
     Active Substance: ROSUVASTATIN CALCIUM
     Route: 065
  60. ROSUVASTATIN CALCIUM [Suspect]
     Active Substance: ROSUVASTATIN CALCIUM
  61. EZETIMIBE [Suspect]
     Active Substance: EZETIMIBE
     Indication: Product used for unknown indication
  62. EZETIMIBE [Suspect]
     Active Substance: EZETIMIBE
     Route: 065
  63. EZETIMIBE [Suspect]
     Active Substance: EZETIMIBE
     Route: 065
  64. EZETIMIBE [Suspect]
     Active Substance: EZETIMIBE
  65. BUPROPION [Suspect]
     Active Substance: BUPROPION
     Indication: Product used for unknown indication
  66. BUPROPION [Suspect]
     Active Substance: BUPROPION
     Route: 065
  67. BUPROPION [Suspect]
     Active Substance: BUPROPION
     Route: 065
  68. BUPROPION [Suspect]
     Active Substance: BUPROPION

REACTIONS (7)
  - Loss of consciousness [Unknown]
  - Malaise [Unknown]
  - Muscle spasms [Unknown]
  - Myalgia [Unknown]
  - Pain in extremity [Unknown]
  - Sleep disorder [Unknown]
  - Hyperhidrosis [Unknown]
